FAERS Safety Report 21597855 (Version 1)
Quarter: 2022Q4

REPORT INFORMATION
  Report Type: Spontaneous
  Country: US (occurrence: None)
  Receive Date: 20221114
  Receipt Date: 20221114
  Transmission Date: 20230113
  Serious: Yes (Hospitalization)
  Sender: FDA-Public Use
  Company Number: None

PATIENT
  Sex: Female

DRUGS (10)
  1. VIGABATRIN [Suspect]
     Active Substance: VIGABATRIN
     Indication: Epilepsy
     Dosage: FREQUENCY : TWICE A DAY;?
     Route: 048
  2. EVEROLIMUS [Suspect]
     Active Substance: EVEROLIMUS
  3. CLONAZEPAM [Concomitant]
     Active Substance: CLONAZEPAM
  4. LANSOPRAZOLE ODT [Concomitant]
  5. DIASTAT PEDIATRIC [Concomitant]
  6. ONDANSETRON HYDROCHLORIDE [Concomitant]
     Active Substance: ONDANSETRON HYDROCHLORIDE
  7. KEPPRA [Concomitant]
     Active Substance: LEVETIRACETAM
  8. CLOBAZAM [Concomitant]
     Active Substance: CLOBAZAM
  9. ALBUTEROL [Concomitant]
     Active Substance: ALBUTEROL
  10. PREMARIN [Concomitant]
     Active Substance: ESTROGENS, CONJUGATED

REACTIONS (5)
  - Parainfluenzae virus infection [None]
  - Acute respiratory distress syndrome [None]
  - Pneumonia [None]
  - Cardiac arrest [None]
  - Therapy cessation [None]
